FAERS Safety Report 21758828 (Version 1)
Quarter: 2022Q4

REPORT INFORMATION
  Report Type: Report from Study
  Country: US (occurrence: US)
  Receive Date: 20221221
  Receipt Date: 20221221
  Transmission Date: 20230113
  Serious: No
  Sender: FDA-Public Use
  Company Number: US-ABBVIE-4244084

PATIENT
  Sex: Female

DRUGS (1)
  1. LEUPROLIDE ACETATE [Suspect]
     Active Substance: LEUPROLIDE ACETATE
     Indication: Hyperpituitarism
     Route: 065
     Dates: start: 20210308, end: 20220919

REACTIONS (2)
  - Influenza [Recovered/Resolved]
  - Urticaria [Recovered/Resolved]
